FAERS Safety Report 14362495 (Version 3)
Quarter: 2019Q1

REPORT INFORMATION
  Report Type: Spontaneous
  Country: IT (occurrence: IT)
  Receive Date: 20180108
  Receipt Date: 20190102
  Transmission Date: 20190417
  Serious: Yes (Hospitalization, Other)
  Sender: FDA-Public Use
  Company Number: IT-CIPLA LTD.-2017IT30991

PATIENT

DRUGS (5)
  1. VALPROIC ACID. [Concomitant]
     Active Substance: VALPROIC ACID
     Indication: EPILEPSY
     Dosage: UNK
     Route: 065
  2. LAMOTRIGINE. [Interacting]
     Active Substance: LAMOTRIGINE
     Indication: EPILEPSY
     Dosage: UNK
     Route: 065
  3. TOPIRAMATE. [Concomitant]
     Active Substance: TOPIRAMATE
     Indication: EPILEPSY
     Dosage: UNK
     Route: 065
  4. IBUPROFEN. [Interacting]
     Active Substance: IBUPROFEN
     Indication: PYREXIA
     Dosage: UNK
     Route: 065
  5. PARACETAMOL [Suspect]
     Active Substance: ACETAMINOPHEN
     Indication: PYREXIA
     Dosage: UNK, TOTAL DOSAGE OF 6 G/DAY, EQUAL TO 160 MG/KG/DAY, OR 4 G/DAY, EQUAL TO 100 MG/KG/DAY
     Route: 065

REACTIONS (10)
  - Angular cheilitis [Unknown]
  - Vomiting [Unknown]
  - Drug-induced liver injury [Recovered/Resolved]
  - Diarrhoea [Unknown]
  - Drug interaction [Unknown]
  - Lip oedema [Unknown]
  - Acute hepatic failure [Recovered/Resolved]
  - Toxicity to various agents [Unknown]
  - Rash maculo-papular [Recovered/Resolved]
  - Pyrexia [Unknown]
